FAERS Safety Report 13003693 (Version 1)
Quarter: 2016Q4

REPORT INFORMATION
  Report Type: Report from Study
  Country: US (occurrence: US)
  Receive Date: 20161206
  Receipt Date: 20161206
  Transmission Date: 20170207
  Serious: Yes (Death)
  Sender: FDA-Public Use
  Company Number: US-ACTELION-A-NJ2015-124270

PATIENT
  Age: 32 Year
  Sex: Female

DRUGS (5)
  1. VELETRI [Suspect]
     Active Substance: EPOPROSTENOL
     Indication: PULMONARY ARTERIAL HYPERTENSION
     Dosage: 46 NG/KG, PER MIN
     Route: 042
     Dates: start: 20140723
  2. COUMADIN [Concomitant]
     Active Substance: WARFARIN SODIUM
  3. ADCIRCA [Concomitant]
     Active Substance: TADALAFIL
  4. VELETRI [Suspect]
     Active Substance: EPOPROSTENOL
     Dosage: 46 NG/KG, PER MIN
     Route: 042
     Dates: start: 20140723
  5. REVATIO [Concomitant]
     Active Substance: SILDENAFIL CITRATE

REACTIONS (22)
  - Catheter site discharge [Unknown]
  - Nasal congestion [Unknown]
  - Nasal discharge discolouration [Unknown]
  - Pyrexia [Unknown]
  - Sinusitis [Unknown]
  - Headache [Unknown]
  - Multiple allergies [Unknown]
  - Cough [Unknown]
  - Nausea [Unknown]
  - Catheter site pain [Unknown]
  - Chest pain [Unknown]
  - Nasopharyngitis [Unknown]
  - Dyspnoea [Unknown]
  - Malaise [Unknown]
  - Hypersomnia [Unknown]
  - Death [Fatal]
  - Paranasal sinus discomfort [Unknown]
  - Catheter site erythema [Unknown]
  - Chest discomfort [Unknown]
  - Abdominal wall abscess [Unknown]
  - Eye swelling [Unknown]
  - Vomiting [Unknown]

NARRATIVE: CASE EVENT DATE: 20161109
